FAERS Safety Report 21454818 (Version 1)
Quarter: 2022Q4

REPORT INFORMATION
  Report Type: Spontaneous
  Country: US (occurrence: None)
  Receive Date: 20221014
  Receipt Date: 20221014
  Transmission Date: 20230112
  Serious: No
  Sender: FDA-Public Use
  Company Number: 2022A339523

PATIENT
  Sex: Female

DRUGS (1)
  1. CALQUENCE [Suspect]
     Active Substance: ACALABRUTINIB
     Route: 048

REACTIONS (7)
  - Onycholysis [Unknown]
  - Deafness unilateral [Unknown]
  - Tinnitus [Unknown]
  - Pneumonia [Unknown]
  - Gout [Unknown]
  - Blood uric acid increased [Unknown]
  - Atrial fibrillation [Unknown]
